FAERS Safety Report 7578665-5 (Version None)
Quarter: 2011Q2

REPORT INFORMATION
  Report Type: 
  Country: None (occurrence: None)
  Receive Date: 20110628
  Receipt Date: 20110622
  Transmission Date: 20111010
  Serious: Yes (Hospitalization, Other)
  Sender: FDA-Public Use
  Company Number: JP-PFIZER INC-2011137661

PATIENT
  Age: 50 Year
  Sex: Male

DRUGS (4)
  1. PRAMIPEXOLE [Concomitant]
     Indication: PARKINSON'S DISEASE
     Dosage: UNK
     Dates: start: 19960101
  2. SELEGILINE [Concomitant]
     Indication: PARKINSON'S DISEASE
     Dosage: UNK
     Dates: start: 19960101
  3. ARTANE [Suspect]
     Indication: PARKINSON'S DISEASE
     Dosage: UNK
     Route: 048
     Dates: start: 19960101
  4. DONEPEZIL [Concomitant]
     Indication: PARKINSON'S DISEASE
     Dosage: UNK
     Dates: start: 19960101

REACTIONS (7)
  - COGNITIVE DISORDER [None]
  - DEPRESSIVE SYMPTOM [None]
  - SUICIDAL IDEATION [None]
  - DELUSION [None]
  - AGITATION [None]
  - HALLUCINATION [None]
  - PSYCHOMOTOR HYPERACTIVITY [None]
